FAERS Safety Report 5355210-6 (Version None)
Quarter: 2007Q2

REPORT INFORMATION
  Report Type: 
  Country: None (occurrence: None)
  Receive Date: 20070611
  Receipt Date: 20070519
  Transmission Date: 20071010
  Serious: Yes (Hospitalization)
  Sender: FDA-Public Use
  Company Number: WSDF_00641

PATIENT
  Age: 54 Year
  Sex: Male

DRUGS (2)
  1. WINRHO SDF [Suspect]
     Indication: IDIOPATHIC THROMBOCYTOPENIC PURPURA
     Dosage: 50 MCG/KG ONCE IV
     Route: 042
     Dates: start: 20030728, end: 20030728
  2. PREDNISONE TAB [Concomitant]

REACTIONS (34)
  - ABDOMINAL PAIN [None]
  - ACUTE HEPATIC FAILURE [None]
  - CHOLANGITIS [None]
  - CHOLESTASIS [None]
  - CHRONIC HEPATITIS [None]
  - COAGULOPATHY [None]
  - COOMBS DIRECT TEST POSITIVE [None]
  - DRUG TOXICITY [None]
  - DYSPNOEA [None]
  - FLUID RETENTION [None]
  - GRAFT VERSUS HOST DISEASE [None]
  - HAEMATURIA [None]
  - HAEMODIALYSIS [None]
  - HEPATIC ENCEPHALOPATHY [None]
  - HEPATIC NECROSIS [None]
  - HEPATIC NEOPLASM [None]
  - HEPATIC NEOPLASM MALIGNANT [None]
  - HEPATITIS B [None]
  - HEPATORENAL SYNDROME [None]
  - HEPATOTOXICITY [None]
  - IMPAIRED HEALING [None]
  - INFLUENZA [None]
  - INTRAVASCULAR HAEMOLYSIS [None]
  - LIVER PALPABLE SUBCOSTAL [None]
  - LIVER TRANSPLANT [None]
  - POLYCHROMASIA [None]
  - PROTEIN URINE [None]
  - RASH [None]
  - RENAL FAILURE [None]
  - RHESUS ANTIBODIES [None]
  - SERUM SICKNESS [None]
  - SPLENOMEGALY [None]
  - TUMOUR INVASION [None]
  - WEIGHT INCREASED [None]
